FAERS Safety Report 9097722 (Version 1)
Quarter: 2013Q1

REPORT INFORMATION
  Report Type: Spontaneous
  Country: AU (occurrence: AU)
  Receive Date: 20130212
  Receipt Date: 20130212
  Transmission Date: 20140127
  Serious: Yes (Other)
  Sender: FDA-Public Use
  Company Number: AU-ROCHE-1190222

PATIENT
  Age: 68 Year
  Sex: Male

DRUGS (3)
  1. BEVACIZUMAB [Suspect]
     Indication: COLON CANCER
     Route: 065
  2. FLUOROURACIL [Concomitant]
     Indication: COLON CANCER
  3. OXALIPLATIN [Concomitant]
     Indication: COLON CANCER

REACTIONS (2)
  - Cardiotoxicity [Unknown]
  - Thrombocytopenia [Unknown]
